FAERS Safety Report 18920360 (Version 1)
Quarter: 2021Q1

REPORT INFORMATION
  Report Type: Report from Study
  Country: US (occurrence: US)
  Receive Date: 20210222
  Receipt Date: 20210222
  Transmission Date: 20210420
  Serious: Yes (Other)
  Sender: FDA-Public Use
  Company Number: US-ROCHE-2722947

PATIENT
  Age: 78 Year
  Sex: Female
  Weight: 81.9 kg

DRUGS (7)
  1. OBINUTUZUMAB. [Suspect]
     Active Substance: OBINUTUZUMAB
     Dosage: ON C1D2
     Route: 042
  2. IBRUTINIB [Suspect]
     Active Substance: IBRUTINIB
     Indication: CHRONIC LYMPHOCYTIC LEUKAEMIA
     Dosage: 420 MG PO QD FOR 15 CYCLES?LAST ADMINISTERED DATE: 15/NOV^/2020
     Route: 048
  3. OBINUTUZUMAB. [Suspect]
     Active Substance: OBINUTUZUMAB
     Indication: CHRONIC LYMPHOCYTIC LEUKAEMIA
     Dosage: 100 MG IV ON C1D1
     Route: 042
     Dates: start: 20201019
  4. OBINUTUZUMAB. [Suspect]
     Active Substance: OBINUTUZUMAB
     Dosage: TOTAL DOSE ADMINISTERED THIS COURSE; 1000 MG; LAST ADMINISTERED DATE: 14/DEC/2020;
     Route: 042
     Dates: start: 20201214, end: 20201214
  5. OBINUTUZUMAB. [Suspect]
     Active Substance: OBINUTUZUMAB
     Dosage: LAST ADMINISTERED DATE: 11/JAN/2021
     Route: 042
     Dates: start: 20210111, end: 20210111
  6. ATORVASTATIN [Suspect]
     Active Substance: ATORVASTATIN
     Indication: CHRONIC LYMPHOCYTIC LEUKAEMIA
     Route: 065
  7. OBINUTUZUMAB. [Suspect]
     Active Substance: OBINUTUZUMAB
     Dosage: ON C1D8 + C1D15, C2?6D1?LAST ADMINISTERED DATE: 04/NOV^/2020
     Route: 042

REACTIONS (3)
  - Hypertension [Not Recovered/Not Resolved]
  - Muscle spasms [Not Recovered/Not Resolved]
  - Hyponatraemia [Not Recovered/Not Resolved]

NARRATIVE: CASE EVENT DATE: 20201116
